FAERS Safety Report 13869043 (Version 2)
Quarter: 2017Q4

REPORT INFORMATION
  Report Type: Report from Study
  Country: ES (occurrence: ES)
  Receive Date: 20170815
  Receipt Date: 20171027
  Transmission Date: 20180320
  Serious: Yes (Other)
  Sender: FDA-Public Use
  Company Number: PHHO2017ES011733

PATIENT
  Age: 12 Year
  Sex: Female
  Weight: 33.2 kg

DRUGS (4)
  1. MODIGRAF [Concomitant]
     Active Substance: TACROLIMUS
     Indication: RENAL TRANSPLANT
     Dosage: 0.2 MG, BID
     Route: 048
     Dates: start: 20170503, end: 20170711
  2. VITAMIN D3 [Concomitant]
     Active Substance: CHOLECALCIFEROL
     Indication: VITAMIN D DEFICIENCY
     Dosage: 1400 IU, QD
     Route: 065
     Dates: start: 20170119, end: 20170711
  3. PROGRAF [Suspect]
     Active Substance: TACROLIMUS\TACROLIMUS ANHYDROUS
     Indication: RENAL TRANSPLANT
     Dosage: 0.5 MG, BID
     Route: 048
     Dates: start: 20140719, end: 20170711
  4. EVEROLIMUS. [Suspect]
     Active Substance: EVEROLIMUS
     Indication: RENAL TRANSPLANT
     Dosage: 1 MG, BID
     Route: 048
     Dates: start: 20140825

REACTIONS (1)
  - Antibody test positive [Recovered/Resolved]

NARRATIVE: CASE EVENT DATE: 20170712
